FAERS Safety Report 14132768 (Version 1)
Quarter: 2017Q4

REPORT INFORMATION
  Report Type: Spontaneous
  Country: BR (occurrence: BR)
  Receive Date: 20171026
  Receipt Date: 20171026
  Transmission Date: 20180321
  Serious: Yes (Other)
  Sender: FDA-Public Use
  Company Number: BR-PFIZER INC-2017458241

PATIENT
  Age: 39 Year
  Sex: Female

DRUGS (1)
  1. FELDENE [Suspect]
     Active Substance: PIROXICAM
     Indication: PAIN
     Dosage: UNK
     Route: 048

REACTIONS (8)
  - Burn oral cavity [Unknown]
  - Hypoaesthesia oral [Unknown]
  - Oral discomfort [Unknown]
  - Oral mucosal discolouration [Unknown]
  - Paraesthesia oral [Unknown]
  - Mouth swelling [Unknown]
  - Lip exfoliation [Unknown]
  - Oral pain [Unknown]

NARRATIVE: CASE EVENT DATE: 20171014
